FAERS Safety Report 8981510 (Version 1)
Quarter: 2012Q4

REPORT INFORMATION
  Report Type: Report from Study
  Country: CA (occurrence: CA)
  Receive Date: 20121221
  Receipt Date: 20121221
  Transmission Date: 20130627
  Serious: Yes (Disabling)
  Sender: FDA-Public Use
  Company Number: CA-US-EMD SERONO, INC.-7182939

PATIENT
  Sex: Female

DRUGS (6)
  1. REBIF [Suspect]
     Indication: MULTIPLE SCLEROSIS
     Route: 058
     Dates: start: 201010, end: 201206
  2. REBIF [Suspect]
     Route: 058
     Dates: start: 20100801, end: 201010
  3. REBIF [Suspect]
     Route: 058
     Dates: start: 20100330, end: 20100801
  4. NALTREXONE [Concomitant]
     Indication: PRODUCT USED FOR UNKNOWN INDICATION
     Dates: start: 201101
  5. NALTREXONE [Concomitant]
     Dates: end: 200911
  6. VERTIGO TX [Concomitant]
     Indication: VERTIGO

REACTIONS (7)
  - Pain in extremity [Unknown]
  - Mobility decreased [Unknown]
  - Muscle spasms [Unknown]
  - Gastrointestinal disorder [Unknown]
  - Faecal incontinence [Unknown]
  - Nasopharyngitis [Unknown]
  - Influenza like illness [Unknown]
